FAERS Safety Report 7423211-X (Version None)
Quarter: 2011Q2

REPORT INFORMATION
  Report Type: 
  Country: None (occurrence: None)
  Receive Date: 20110419
  Receipt Date: 20101207
  Transmission Date: 20111010
  Serious: Yes (Hospitalization)
  Sender: FDA-Public Use
  Company Number: US-BAYER-201038465NA

PATIENT
  Age: 24 Year
  Sex: Female
  Weight: 104.31 kg

DRUGS (5)
  1. YAZ [Suspect]
     Indication: ACNE
     Dosage: UNK
     Dates: start: 20070101
  2. YASMIN [Suspect]
     Indication: ACNE
     Dosage: UNK
     Dates: start: 20070317, end: 20070725
  3. OCELLA [Suspect]
     Indication: ACNE
     Dosage: UNK
     Dates: start: 20090501, end: 20090526
  4. NIFEDIPINE [Concomitant]
     Dosage: 30 MG, UNK
     Route: 048
  5. METFORMIN [Concomitant]
     Dosage: UNK
     Route: 048

REACTIONS (5)
  - PULMONARY THROMBOSIS [None]
  - CARDIOMEGALY [None]
  - INJURY [None]
  - PAIN [None]
  - DYSPNOEA [None]
